FAERS Safety Report 25314168 (Version 6)
Quarter: 2025Q3

REPORT INFORMATION
  Report Type: Report from Study
  Country: CN (occurrence: CN)
  Receive Date: 20250514
  Receipt Date: 20250908
  Transmission Date: 20251020
  Serious: Yes (Death, Life-Threatening, Other)
  Sender: ROCHE
  Company Number: CN-ROCHE-10000281571

PATIENT
  Age: 85 Year
  Sex: Male
  Weight: 63 kg

DRUGS (52)
  1. POLATUZUMAB VEDOTIN [Suspect]
     Active Substance: POLATUZUMAB VEDOTIN
     Indication: Diffuse large B-cell lymphoma
     Dosage: START DATE: 13-JUN-2024
     Route: 042
     Dates: start: 20240613, end: 20240613
  2. POLATUZUMAB VEDOTIN [Suspect]
     Active Substance: POLATUZUMAB VEDOTIN
     Route: 042
     Dates: start: 20240525, end: 20240525
  3. RITUXIMAB [Suspect]
     Active Substance: RITUXIMAB
     Indication: Diffuse large B-cell lymphoma
     Dosage: START DATE: 12-JUN-2024
     Route: 042
     Dates: start: 20240612, end: 20240612
  4. RITUXIMAB [Suspect]
     Active Substance: RITUXIMAB
     Route: 042
     Dates: start: 20240523, end: 20240524
  5. LENALIDOMIDE [Suspect]
     Active Substance: LENALIDOMIDE
     Indication: Diffuse large B-cell lymphoma
     Route: 048
     Dates: start: 20240524, end: 20240602
  6. LENALIDOMIDE [Suspect]
     Active Substance: LENALIDOMIDE
     Route: 048
     Dates: start: 20240613, end: 20240622
  7. LENALIDOMIDE [Suspect]
     Active Substance: LENALIDOMIDE
     Route: 048
     Dates: start: 20240523, end: 20240602
  8. ZANUBRUTINIB [Suspect]
     Active Substance: ZANUBRUTINIB
     Indication: Diffuse large B-cell lymphoma
     Route: 048
     Dates: start: 20240612, end: 20240703
  9. ZANUBRUTINIB [Suspect]
     Active Substance: ZANUBRUTINIB
     Route: 048
     Dates: start: 20240523, end: 20240611
  10. CLOPIDOGREL [Concomitant]
     Active Substance: CLOPIDOGREL BISULFATE
     Route: 048
  11. Acetylcysteine Solution for Inhalation [Concomitant]
     Route: 055
     Dates: start: 20240520, end: 20240524
  12. LINEZOLID [Concomitant]
     Active Substance: LINEZOLID
     Route: 048
     Dates: start: 20240520, end: 20240521
  13. AMBROXOL HYDROCHLORIDE [Concomitant]
     Active Substance: AMBROXOL HYDROCHLORIDE
     Route: 042
     Dates: start: 20240520
  14. TORSEMIDE [Concomitant]
     Active Substance: TORSEMIDE
     Route: 042
     Dates: start: 20240520
  15. ALBUMIN HUMAN [Concomitant]
     Active Substance: ALBUMIN HUMAN
     Route: 042
     Dates: start: 20240520, end: 20240529
  16. LIDOCAINE HYDROCHLORIDE [Concomitant]
     Active Substance: LIDOCAINE HYDROCHLORIDE
     Indication: Local anaesthesia
     Route: 050
     Dates: start: 20240520, end: 20240520
  17. Recombinant human thrombopoietin injection [Concomitant]
     Dosage: 15000 U
     Route: 050
     Dates: start: 20240521
  18. METHYLPREDNISOLONE SODIUM SUCCINATE [Concomitant]
     Active Substance: METHYLPREDNISOLONE SODIUM SUCCINATE
     Route: 042
     Dates: start: 20240521, end: 20240523
  19. Omeprazole Enteric-coated Capsules [Concomitant]
     Route: 048
     Dates: start: 20240621, end: 20240622
  20. SODIUM BICARBONATE [Concomitant]
     Active Substance: SODIUM BICARBONATE
     Route: 042
     Dates: start: 20240521, end: 20240523
  21. PREDNISONE ACETATE [Concomitant]
     Active Substance: PREDNISONE ACETATE
     Route: 048
     Dates: start: 20240521, end: 20240521
  22. ENEMA (SODIUM PHOSPHATE, DIBASIC\SODIUM PHOSPHATE, MONOBASIC) [Concomitant]
     Active Substance: SODIUM PHOSPHATE, DIBASIC\SODIUM PHOSPHATE, MONOBASIC
     Route: 050
     Dates: start: 20240521, end: 20240521
  23. Promethazine needle [Concomitant]
     Route: 030
     Dates: start: 20240522, end: 20240523
  24. Compound paracetamol tablets [Concomitant]
     Route: 048
     Dates: start: 20240522, end: 20240524
  25. Isosorbide Dinitrate Injection [Concomitant]
     Route: 050
     Dates: start: 20240522
  26. SPIRONOLACTONE [Concomitant]
     Active Substance: SPIRONOLACTONE
     Route: 048
     Dates: start: 20240522
  27. POTASSIUM CHLORIDE [Concomitant]
     Active Substance: POTASSIUM CHLORIDE
     Dosage: 2 TABLET
     Route: 048
     Dates: start: 20240522
  28. POTASSIUM CHLORIDE [Concomitant]
     Active Substance: POTASSIUM CHLORIDE
     Dosage: 2 TABLET
     Dates: start: 20240522
  29. FLUCONAZOLE [Concomitant]
     Active Substance: FLUCONAZOLE
     Route: 042
     Dates: start: 20240523
  30. ZOLPIDEM TARTRATE [Concomitant]
     Active Substance: ZOLPIDEM TARTRATE
     Route: 048
     Dates: start: 20240524, end: 20240524
  31. MEROPENEM [Concomitant]
     Active Substance: MEROPENEM
     Route: 042
     Dates: start: 20240525
  32. FUROSEMIDE [Concomitant]
     Active Substance: FUROSEMIDE
     Indication: Polyuria
     Route: 042
     Dates: start: 20240525, end: 20240528
  33. Lanatoside injection [Concomitant]
     Route: 042
     Dates: start: 20240525, end: 20240525
  34. AMIODARONE HYDROCHLORIDE [Concomitant]
     Active Substance: AMIODARONE HYDROCHLORIDE
     Route: 042
     Dates: start: 20240525, end: 20240525
  35. DEXAMETHASONE SODIUM PHOSPHATE [Concomitant]
     Active Substance: DEXAMETHASONE SODIUM PHOSPHATE
     Route: 042
     Dates: start: 20240525, end: 20240525
  36. FEBUXOSTAT [Concomitant]
     Active Substance: FEBUXOSTAT
     Indication: Blood uric acid decreased
     Route: 048
     Dates: start: 20240525, end: 20240605
  37. ATORVASTATIN CALCIUM [Concomitant]
     Active Substance: ATORVASTATIN CALCIUM
     Route: 048
     Dates: start: 20240526
  38. Carpofungin acetate for injection [Concomitant]
     Route: 042
     Dates: start: 20240527
  39. 5g intravenous injection of human immunoglobulin [Concomitant]
     Route: 042
     Dates: start: 20240527, end: 20240527
  40. PROTHROMBIN COMPLEX CONCENTRATE [Concomitant]
     Active Substance: COAGULATION FACTOR IX HUMAN\COAGULATION FACTOR VII HUMAN\COAGULATION FACTOR X HUMAN\PROTEIN C\PROTEI
     Dosage: 300 IU
     Route: 042
     Dates: start: 20240527, end: 20240527
  41. FONDAPARINUX SODIUM [Concomitant]
     Active Substance: FONDAPARINUX SODIUM
     Route: 050
     Dates: start: 20240529
  42. Vancomycin for injection [Concomitant]
     Route: 042
     Dates: start: 20240531
  43. Ursodeoxycholic acid capsules [Concomitant]
     Route: 048
     Dates: start: 20240603
  44. Recombinant human brain natriuretic peptide for injection [Concomitant]
     Route: 050
     Dates: start: 20240606, end: 20240606
  45. METHYLPREDNISOLONE SODIUM SUCCINATE [Concomitant]
     Active Substance: METHYLPREDNISOLONE SODIUM SUCCINATE
     Route: 042
     Dates: start: 20240612, end: 20240612
  46. Omeprazole enteric-coated capsules [Concomitant]
     Route: 048
     Dates: start: 20240612, end: 20240612
  47. Compound acetaminophen tablets [Concomitant]
     Route: 048
     Dates: start: 20240612, end: 20240613
  48. PROMETHAZINE [Concomitant]
     Active Substance: PROMETHAZINE HYDROCHLORIDE
     Route: 030
     Dates: start: 20240612, end: 20240613
  49. LEUCOGEN [Concomitant]
     Active Substance: LEUCOGEN
     Route: 048
     Dates: start: 20240614
  50. Cefaclor sustained release capsules [Concomitant]
     Route: 048
     Dates: start: 20240614
  51. SULFAMETHOXAZOLE [Concomitant]
     Active Substance: SULFAMETHOXAZOLE
     Dosage: 1 TABLET
     Route: 048
     Dates: start: 20240614
  52. ETV [Concomitant]

REACTIONS (7)
  - Acute respiratory failure [Not Recovered/Not Resolved]
  - Lacunar infarction [Recovering/Resolving]
  - Acute left ventricular failure [Recovering/Resolving]
  - Pneumonia haemophilus [Recovering/Resolving]
  - Candida pneumonia [Recovering/Resolving]
  - Pyrexia [Recovered/Resolved]
  - Death [Fatal]

NARRATIVE: CASE EVENT DATE: 20240525
